FAERS Safety Report 18587129 (Version 1)
Quarter: 2020Q4

REPORT INFORMATION
  Report Type: Report from Study
  Country: None (occurrence: US)
  Receive Date: 20201207
  Receipt Date: 20201207
  Transmission Date: 20210114
  Serious: Yes (Hospitalization, Other)
  Sender: FDA-Public Use
  Company Number: US-ABBVIE-20K-163-3672329-00

PATIENT
  Sex: Female

DRUGS (2)
  1. RINVOQ [Suspect]
     Active Substance: UPADACITINIB
     Route: 048
  2. RINVOQ [Suspect]
     Active Substance: UPADACITINIB
     Indication: RHEUMATOID ARTHRITIS
     Route: 048

REACTIONS (6)
  - Rectal haemorrhage [Not Recovered/Not Resolved]
  - Immunodeficiency [Unknown]
  - Gastrointestinal disorder [Unknown]
  - Colitis ischaemic [Unknown]
  - Herpes zoster [Not Recovered/Not Resolved]
  - Furuncle [Not Recovered/Not Resolved]
